FAERS Safety Report 16750581 (Version 1)
Quarter: 2019Q3

REPORT INFORMATION
  Report Type: Spontaneous
  Country: US (occurrence: US)
  Receive Date: 20190710
  Receipt Date: 20190710
  Transmission Date: 20191005
  Serious: Yes (Other)
  Sender: FDA-Public Use
  Company Number: None

PATIENT
  Age: 76 Year
  Sex: Female
  Weight: 83.91 kg

DRUGS (2)
  1. HUMIRA [Suspect]
     Active Substance: ADALIMUMAB
     Indication: RHEUMATOID ARTHRITIS
     Dosage: ?          OTHER DOSE:40/0.8MG;?
     Route: 058
     Dates: start: 20190213
  2. HUMIRA [Suspect]
     Active Substance: ADALIMUMAB
     Dosage: ?          OTHER DOSE:40/0.8MG/ML;OTHER FREQUENCY:2 X MO;?
     Route: 058
     Dates: start: 20190227, end: 20190313

REACTIONS (5)
  - Urticaria [None]
  - Psoriasis [None]
  - Skin swelling [None]
  - Rash generalised [None]
  - Pruritus generalised [None]

NARRATIVE: CASE EVENT DATE: 20190313
